FAERS Safety Report 8928721 (Version 1)
Quarter: 2012Q4

REPORT INFORMATION
  Report Type: Spontaneous
  Country: FR (occurrence: None)
  Receive Date: 20121120
  Receipt Date: 20121120
  Transmission Date: 20130627
  Serious: Yes (Hospitalization)
  Sender: FDA-Public Use
  Company Number: DSA_60896_2012

PATIENT
  Age: 83 Year
  Sex: Male

DRUGS (11)
  1. MONO TILDIEM [Suspect]
     Indication: HYPERTENSION
     Route: 048
     Dates: start: 200808, end: 201207
  2. TRIATEC [Suspect]
     Indication: HYPERTENSION
     Route: 048
     Dates: end: 201207
  3. LASILIX [Suspect]
     Indication: HYPERTENSION
     Route: 048
  4. CALCIDIA [Concomitant]
  5. DAFALGAN [Concomitant]
  6. GAVISON /00237601/ [Concomitant]
  7. INEXIUM /01479302/ [Concomitant]
  8. ONE-ALPHA [Concomitant]
  9. ZYRTEC [Concomitant]
  10. LOVENOX [Concomitant]
  11. CALCIUM POLYSTYRENE SULFONATE [Concomitant]

REACTIONS (5)
  - Hypotension [None]
  - Malaise [None]
  - Fall [None]
  - Head injury [None]
  - Haemoglobin decreased [None]
